FAERS Safety Report 17716475 (Version 1)
Quarter: 2020Q2

REPORT INFORMATION
  Report Type: Spontaneous
  Country: ES (occurrence: ES)
  Receive Date: 20200428
  Receipt Date: 20200428
  Transmission Date: 20200714
  Serious: Yes (Other)
  Sender: FDA-Public Use
  Company Number: ES-AXELLIA-003097

PATIENT
  Age: 43 Year
  Sex: Male

DRUGS (2)
  1. PIPERACILLIN SODIUM/TAZOBACTAM [Suspect]
     Active Substance: PIPERACILLIN SODIUM\TAZOBACTAM SODIUM
     Indication: FEBRILE NEUTROPENIA
     Dosage: 4G/6H
     Route: 042
     Dates: start: 20190929, end: 20191003
  2. VANCOMYCIN [Suspect]
     Active Substance: VANCOMYCIN
     Indication: ANAL ABSCESS
     Dosage: VANCOMYCIN 3197A, 1G/12H
     Route: 042
     Dates: start: 20190929, end: 20191003

REACTIONS (1)
  - Acute kidney injury [Recovered/Resolved]

NARRATIVE: CASE EVENT DATE: 20191003
